FAERS Safety Report 14917572 (Version 3)
Quarter: 2020Q3

REPORT INFORMATION
  Report Type: Report from Study
  Country: FR (occurrence: FR)
  Receive Date: 20180521
  Receipt Date: 20180718
  Transmission Date: 20201105
  Serious: Yes (Hospitalization)
  Sender: FDA-Public Use
  Company Number: FR-ROCHE-2123946

PATIENT
  Age: 48 Year
  Sex: Male
  Weight: 73 kg

DRUGS (9)
  1. LEVETIRACETAM. [Concomitant]
     Active Substance: LEVETIRACETAM
     Route: 065
     Dates: start: 20160508
  2. PARACETAMOL [Concomitant]
     Active Substance: ACETAMINOPHEN
     Route: 065
     Dates: start: 20160508
  3. INNOHEP [Concomitant]
     Active Substance: TINZAPARIN SODIUM
     Route: 065
     Dates: start: 20160702
  4. ALECTINIB. [Suspect]
     Active Substance: ALECTINIB
     Indication: NON-SMALL CELL LUNG CANCER
     Route: 048
     Dates: start: 20171117
  5. CORTANCYL [Concomitant]
     Active Substance: PREDNISONE
  6. PREGABALINE [Concomitant]
     Active Substance: PREGABALIN
     Route: 065
     Dates: start: 20170106
  7. VALIUM [Concomitant]
     Active Substance: DIAZEPAM
     Route: 065
     Dates: start: 20171012
  8. XGEVA [Concomitant]
     Active Substance: DENOSUMAB
     Route: 065
     Dates: start: 20170105
  9. CACIT D3 [Concomitant]
     Active Substance: CALCIUM\CHOLECALCIFEROL
     Indication: HYPOCALCAEMIA

REACTIONS (2)
  - Pleurisy [Not Recovered/Not Resolved]
  - Pain [Not Recovered/Not Resolved]

NARRATIVE: CASE EVENT DATE: 20180510
